FAERS Safety Report 8197460-X (Version None)
Quarter: 2012Q1

REPORT INFORMATION
  Report Type: 
  Country: None (occurrence: None)
  Receive Date: 20120309
  Receipt Date: 20120301
  Transmission Date: 20120608
  Serious: Yes (Other)
  Sender: FDA-Public Use
  Company Number: IT-SANOFI-AVENTIS-2012SA014766

PATIENT
  Sex: Female

DRUGS (1)
  1. DEMEROL [Suspect]
     Route: 065

REACTIONS (1)
  - STRESS CARDIOMYOPATHY [None]
